FAERS Safety Report 10202751 (Version 3)
Quarter: 2014Q2

REPORT INFORMATION
  Report Type: Report from Study
  Country: KE (occurrence: KE)
  Receive Date: 20140528
  Receipt Date: 20140616
  Transmission Date: 20141212
  Serious: Yes (Death, Hospitalization, Other)
  Sender: FDA-Public Use
  Company Number: KE-GILEAD-2014-0103142

PATIENT
  Age: 41 Year
  Sex: Female

DRUGS (18)
  1. TENOFOVIR DISOPROXIL FUMARATE [Suspect]
     Indication: HIV INFECTION
     Dosage: UNK
     Route: 065
     Dates: start: 20140515, end: 20140607
  2. EMTRICITABINE [Suspect]
     Indication: HIV INFECTION
     Dosage: UNK
     Route: 065
     Dates: start: 20140515, end: 20140607
  3. EFAVIRENZ [Suspect]
     Indication: HIV INFECTION
     Dosage: UNK
     Route: 065
     Dates: start: 20140515, end: 20140520
  4. NEVIRAPINE [Suspect]
     Indication: HIV INFECTION
     Dosage: UNK
     Route: 065
     Dates: start: 20140523, end: 20140607
  5. SEPTRIN [Suspect]
     Indication: PRODUCT USED FOR UNKNOWN INDICATION
     Dosage: UNK
     Route: 065
     Dates: start: 20140428, end: 20140607
  6. RIFAMPICIN [Suspect]
     Indication: TUBERCULOSIS
     Dosage: UNK
     Route: 065
     Dates: start: 20140428, end: 20140607
  7. ISONIAZID [Suspect]
     Indication: TUBERCULOSIS
     Dosage: UNK
     Route: 065
     Dates: start: 20140428, end: 20140607
  8. PYRAZINAMIDE [Suspect]
     Indication: TUBERCULOSIS
     Dosage: UNK
     Route: 065
     Dates: start: 20140428, end: 20140607
  9. ETHAMBUTOL [Suspect]
     Indication: TUBERCULOSIS
     Dosage: UNK
     Route: 065
     Dates: start: 20140428, end: 20140607
  10. FLUCONAZOLE [Suspect]
     Indication: PRODUCT USED FOR UNKNOWN INDICATION
     Dosage: UNK
     Route: 065
     Dates: start: 20140515, end: 20140607
  11. PYRIDOXINE [Suspect]
     Indication: TUBERCULOSIS
     Dosage: UNK
     Route: 065
     Dates: start: 20140428, end: 20140607
  12. CEFTRIAXONE [Suspect]
     Indication: PNEUMONIA
  13. PARACETAMOL [Suspect]
     Indication: PRODUCT USED FOR UNKNOWN INDICATION
     Dosage: UNK
     Route: 065
     Dates: start: 20140519, end: 20140523
  14. CHLORPROMAZINE [Suspect]
     Indication: PSYCHOTIC DISORDER
     Dosage: UNK
     Route: 065
     Dates: start: 20140521, end: 20140607
  15. ARTANE [Suspect]
     Indication: PRODUCT USED FOR UNKNOWN INDICATION
     Dosage: UNK
     Dates: start: 20140520, end: 20140607
  16. LAROXYL [Suspect]
     Dosage: UNK
     Dates: start: 20140520, end: 20140527
  17. AZITHROMYCIN [Concomitant]
     Indication: PRODUCT USED FOR UNKNOWN INDICATION
     Dosage: UNK
     Route: 065
     Dates: start: 20140515, end: 20140520
  18. ALBENDAZOLE [Concomitant]
     Indication: PRODUCT USED FOR UNKNOWN INDICATION
     Dosage: UNK
     Route: 065
     Dates: start: 20140515, end: 20140515

REACTIONS (6)
  - Death [Fatal]
  - Pulmonary tuberculosis [Recovered/Resolved]
  - Acute psychosis [Recovering/Resolving]
  - Malnutrition [Recovered/Resolved]
  - Pneumonia [Recovered/Resolved]
  - Immune reconstitution inflammatory syndrome associated tuberculosis [Recovered/Resolved]
